FAERS Safety Report 13135894 (Version 2)
Quarter: 2017Q1

REPORT INFORMATION
  Report Type: Spontaneous
  Country: US (occurrence: US)
  Receive Date: 20170120
  Receipt Date: 20170127
  Transmission Date: 20170428
  Serious: Yes (Hospitalization)
  Sender: FDA-Public Use
  Company Number: US-BIOMARINAP-US-2017-112529

PATIENT
  Age: 1 Year
  Sex: Female
  Weight: 10.7 kg

DRUGS (1)
  1. ALDURAZYME [Suspect]
     Active Substance: LARONIDASE
     Indication: MUCOPOLYSACCHARIDOSIS I
     Dosage: 0.54 MG/KG, QW
     Route: 042
     Dates: start: 20161017

REACTIONS (1)
  - Chemotherapy [Not Recovered/Not Resolved]

NARRATIVE: CASE EVENT DATE: 20170109
